FAERS Safety Report 7331629-9 (Version None)
Quarter: 2011Q1

REPORT INFORMATION
  Report Type: 
  Country: None (occurrence: None)
  Receive Date: 20110304
  Receipt Date: 20110222
  Transmission Date: 20110831
  Serious: Yes (Other)
  Sender: FDA-Public Use
  Company Number: SE-JNJFOC-20101204141

PATIENT
  Sex: Male
  Weight: 83.7 kg

DRUGS (4)
  1. USTEKINUMAB [Suspect]
     Route: 058
  2. USTEKINUMAB [Suspect]
     Indication: PSORIASIS
     Route: 058
  3. USTEKINUMAB [Suspect]
     Route: 058
  4. METHOTREXATE [Suspect]
     Indication: PSORIASIS

REACTIONS (1)
  - PROSTATE CANCER [None]
